FAERS Safety Report 8533287 (Version 4)
Quarter: 2013Q4

REPORT INFORMATION
  Report Type: Other
  Country: FR (occurrence: FR)
  Receive Date: 20120427
  Receipt Date: 20131230
  Transmission Date: 20140711
  Serious: Yes (Death, Life-Threatening, Hospitalization, Disabling, Other)
  Sender: FDA-Public Use
  Company Number: FR-MPIJNJ-2012-02690

PATIENT
  Sex: 0

DRUGS (10)
  1. VELCADE [Suspect]
     Indication: PLASMA CELL MYELOMA
     Dosage: 2.2 MG, UNK
     Route: 042
     Dates: start: 201109, end: 201109
  2. VELCADE [Suspect]
     Dosage: 2.6 MG, UNK
     Route: 042
     Dates: start: 20111010, end: 20111114
  3. VELCADE [Suspect]
     Dosage: 2.2 MG, UNK
     Route: 042
     Dates: start: 20111117, end: 20111215
  4. BENDAMUSTINE [Suspect]
     Indication: PLASMA CELL MYELOMA
     Dosage: 220 MG, UNK
     Route: 065
     Dates: start: 20090831, end: 20091013
  5. BENDAMUSTINE [Suspect]
     Dosage: 180 MG, UNK
     Route: 065
     Dates: start: 20090123, end: 20101216
  6. BENDAMUSTINE [Suspect]
     Dosage: 177.5 MG, UNK
     Route: 065
     Dates: start: 20100124, end: 20100125
  7. BENDAMUSTINE [Suspect]
     Dosage: 237.5 MG, UNK
     Route: 065
     Dates: start: 20100221, end: 20110531
  8. BENDAMUSTINE [Suspect]
     Dosage: 237.5 MG, TWICE A MONTH
     Route: 065
     Dates: start: 20110831
  9. THALIDOMIDE [Suspect]
     Indication: PLASMA CELL MYELOMA
     Dosage: 50 MG, UNK
     Route: 065
     Dates: start: 200611, end: 200707
  10. REVLIMID [Suspect]
     Indication: PLASMA CELL MYELOMA
     Dosage: 25 MG, UNK
     Route: 065
     Dates: start: 200712, end: 200903

REACTIONS (2)
  - Progressive multifocal leukoencephalopathy [Fatal]
  - Septic shock [Unknown]
